FAERS Safety Report 15125828 (Version 1)
Quarter: 2018Q3

REPORT INFORMATION
  Report Type: Spontaneous
  Country: US (occurrence: US)
  Receive Date: 20180710
  Receipt Date: 20180710
  Transmission Date: 20181010
  Serious: No
  Sender: FDA-Public Use
  Company Number: US-UPSHER-SMITH LABORATORIES, LLC-2018USL00043

PATIENT
  Age: 56 Year
  Sex: Male

DRUGS (1)
  1. TESTOSTERONE. [Suspect]
     Active Substance: TESTOSTERONE
     Indication: BLOOD TESTOSTERONE DECREASED
     Dosage: 100 MG, 1X/DAY (1 PACKET FOR EACH ARM/SHOULDER)
     Route: 061
     Dates: start: 20180124

REACTIONS (1)
  - Application site warmth [Unknown]

NARRATIVE: CASE EVENT DATE: 201801
